FAERS Safety Report 8229689-6 (Version None)
Quarter: 2012Q1

REPORT INFORMATION
  Report Type: 
  Country: None (occurrence: None)
  Receive Date: 20120322
  Receipt Date: 20120319
  Transmission Date: 20120608
  Serious: Yes (Hospitalization, Other)
  Sender: FDA-Public Use
  Company Number: PHEH2011US011394

PATIENT
  Sex: Female
  Weight: 112.93 kg

DRUGS (4)
  1. IMITREX [Concomitant]
     Indication: MIGRAINE
     Dosage: 100 MG, PRN
  2. CELEXA [Concomitant]
     Indication: DEPRESSION
     Dosage: 20 MG, QD
     Route: 048
  3. GILENYA [Suspect]
     Indication: MULTIPLE SCLEROSIS
     Dosage: 0.5 MG, QD
     Route: 048
     Dates: start: 20110715, end: 20111123
  4. SYNTHROID [Concomitant]
     Indication: HYPOTHYROIDISM

REACTIONS (2)
  - SEROTONIN SYNDROME [None]
  - MENTAL STATUS CHANGES [None]
